FAERS Safety Report 4536057-7 (Version None)
Quarter: 2004Q4

REPORT INFORMATION
  Report Type: 
  Country: None (occurrence: None)
  Receive Date: 20041214
  Receipt Date: 20031110
  Transmission Date: 20050328
  Serious: Yes (Other)
  Sender: FDA-Public Use
  Company Number: 2003185163US

PATIENT
  Sex: 0

DRUGS (1)
  1. XANAX [Suspect]
     Indication: ANXIETY
     Dates: start: 19930101

REACTIONS (6)
  - CONVULSION [None]
  - DRUG DEPENDENCE [None]
  - DRUG WITHDRAWAL SYNDROME [None]
  - HEADACHE [None]
  - MUSCLE SPASMS [None]
  - MUSCLE TWITCHING [None]
